FAERS Safety Report 25305327 (Version 1)
Quarter: 2025Q2

REPORT INFORMATION
  Report Type: Spontaneous
  Country: US (occurrence: US)
  Receive Date: 20250513
  Receipt Date: 20250513
  Transmission Date: 20250717
  Serious: No
  Sender: CALLIDITAS THERAPEUTICS AB
  Company Number: US-Calliditas-2025CAL00687

PATIENT
  Age: 41 Year
  Sex: Female

DRUGS (5)
  1. TARPEYO [Suspect]
     Active Substance: BUDESONIDE
     Indication: IgA nephropathy
     Route: 048
     Dates: start: 202304
  2. LOSARTAN [Concomitant]
     Active Substance: LOSARTAN
  3. IRON [Concomitant]
     Active Substance: IRON
  4. PHENTERMINE [Concomitant]
     Active Substance: PHENTERMINE
  5. VITAMINS [Concomitant]
     Active Substance: VITAMINS

REACTIONS (2)
  - Contusion [Not Recovered/Not Resolved]
  - Product dose omission issue [Unknown]
